FAERS Safety Report 10052667 (Version 2)
Quarter: 2014Q2

REPORT INFORMATION
  Report Type: Spontaneous
  Country: FR (occurrence: None)
  Receive Date: 20140331
  Receipt Date: 20140410
  Transmission Date: 20141212
  Serious: Yes (Hospitalization, Other)
  Sender: FDA-Public Use
  Company Number: 2014000086

PATIENT
  Age: 78 Year
  Sex: Female

DRUGS (5)
  1. ACEON [Suspect]
     Indication: PRODUCT USED FOR UNKNOWN INDICATION
     Route: 048
     Dates: end: 20140227
  2. PROCORALAN (IVABRADINE HYDROCHLORIDE) [Concomitant]
  3. LEVOTHYROX (LEVOTHYROXINE) [Concomitant]
  4. ALDACTONE (SPIRONOLACTONE) [Concomitant]
  5. PREVISCAN (FLUINDIONE) [Concomitant]

REACTIONS (5)
  - Pruritus [None]
  - Tongue oedema [None]
  - Respiratory distress [None]
  - Face oedema [None]
  - Angioedema [None]
